FAERS Safety Report 11186521 (Version 1)
Quarter: 2015Q2

REPORT INFORMATION
  Report Type: Spontaneous
  Country: US (occurrence: US)
  Receive Date: 20150613
  Receipt Date: 20150613
  Transmission Date: 20150821
  Serious: No
  Sender: FDA-Public Use
  Company Number: US-BIOGENIDEC-2015BI080082

PATIENT
  Sex: Female

DRUGS (1)
  1. TECFIDERA [Suspect]
     Active Substance: DIMETHYL FUMARATE
     Indication: PRODUCT USED FOR UNKNOWN INDICATION
     Route: 048
     Dates: start: 20140601, end: 20150603

REACTIONS (7)
  - Oedema peripheral [Unknown]
  - Balance disorder [Unknown]
  - Dry skin [Unknown]
  - Abasia [Unknown]
  - Renal impairment [Unknown]
  - Peripheral swelling [Unknown]
  - Skin exfoliation [Unknown]
